FAERS Safety Report 14323861 (Version 2)
Quarter: 2018Q4

REPORT INFORMATION
  Report Type: Report from Study
  Country: US (occurrence: US)
  Receive Date: 20171226
  Receipt Date: 20181203
  Transmission Date: 20190204
  Serious: Yes (Hospitalization)
  Sender: FDA-Public Use
  Company Number: US-TAKEDA-2017TUS026539

PATIENT
  Sex: Female
  Weight: 54.42 kg

DRUGS (1)
  1. VEDOLIZUMAB [Suspect]
     Active Substance: VEDOLIZUMAB
     Indication: CROHN^S DISEASE
     Dosage: 300 MG, UNK
     Route: 042
     Dates: start: 201512

REACTIONS (3)
  - Lymphadenopathy [Recovered/Resolved]
  - Sinusitis [Recovered/Resolved]
  - Hospitalisation [Unknown]
